FAERS Safety Report 25554845 (Version 2)
Quarter: 2025Q3

REPORT INFORMATION
  Report Type: Report from Study
  Country: US (occurrence: US)
  Receive Date: 20250715
  Receipt Date: 20250808
  Transmission Date: 20251020
  Serious: Yes (Other)
  Sender: ABBVIE
  Company Number: US-ABBVIE-6326468

PATIENT
  Sex: Female

DRUGS (1)
  1. SKYRIZI [Suspect]
     Active Substance: RISANKIZUMAB-RZAA
     Indication: Psoriasis
     Route: 058
     Dates: start: 20221101

REACTIONS (6)
  - Foot fracture [Unknown]
  - Psoriatic arthropathy [Unknown]
  - Osteoarthritis [Unknown]
  - Spinal stenosis [Unknown]
  - Intervertebral disc degeneration [Unknown]
  - Fall [Unknown]
